FAERS Safety Report 22859343 (Version 3)
Quarter: 2024Q1

REPORT INFORMATION
  Report Type: Other
  Country: CA (occurrence: None)
  Receive Date: 20230824
  Receipt Date: 20240123
  Transmission Date: 20240410
  Serious: Yes (Hospitalization)
  Sender: FDA-Public Use
  Company Number: CA-ROCHE-3408052

PATIENT
  Sex: Female

DRUGS (1)
  1. OCREVUS [Suspect]
     Active Substance: OCRELIZUMAB
     Indication: Relapsing-remitting multiple sclerosis
     Dosage: 300 MG AT DAY 0 AND 14, THEN 600 MG EVERY 6 MONTHS?CONCENTRATE FOR INTRAVENOUS INFUSION
     Route: 042
     Dates: start: 20180226

REACTIONS (4)
  - Bacterial infection [Unknown]
  - Hepatic vascular thrombosis [Unknown]
  - Gastrointestinal wall thickening [Unknown]
  - Decreased immune responsiveness [Unknown]
